FAERS Safety Report 14310130 (Version 1)
Quarter: 2017Q4

REPORT INFORMATION
  Report Type: Report from Study
  Country: US (occurrence: US)
  Receive Date: 20171220
  Receipt Date: 20171220
  Transmission Date: 20180321
  Serious: Yes (Hospitalization)
  Sender: FDA-Public Use
  Company Number: US-EXELIXIS-CABO-17011722

PATIENT
  Age: 76 Year
  Sex: Male
  Weight: 68.27 kg

DRUGS (1)
  1. CABOMETYX [Suspect]
     Active Substance: CABOZANTINIB S-MALATE
     Indication: RENAL CANCER
     Dosage: 40 MG, QD
     Route: 048
     Dates: start: 20171120

REACTIONS (2)
  - Orthopnoea [Unknown]
  - Cough [Unknown]

NARRATIVE: CASE EVENT DATE: 20171123
